FAERS Safety Report 4386492-5 (Version None)
Quarter: 2004Q2

REPORT INFORMATION
  Report Type: 
  Country: None (occurrence: None)
  Receive Date: 20040623
  Receipt Date: 20040609
  Transmission Date: 20050107
  Serious: Yes (Hospitalization)
  Sender: FDA-Public Use
  Company Number: 8006428

PATIENT
  Age: 42 Year
  Sex: Female

DRUGS (4)
  1. KEPPRA [Suspect]
     Indication: EPILEPSY
     Dosage: 500 MG 2/D PO
     Route: 048
     Dates: start: 20040101
  2. LAMOTRIGINE [Suspect]
     Indication: EPILEPSY
     Dosage: 200 MG 2/D PO
     Route: 048
     Dates: start: 20020101, end: 20030701
  3. LAMOTRIGINE [Suspect]
     Indication: EPILEPSY
     Dosage: 350 MG 2/D PO
     Route: 048
     Dates: start: 20030706, end: 20031201
  4. LAMOTRIGINE [Suspect]
     Indication: EPILEPSY
     Dosage: 100 MG 2/D PO
     Route: 048

REACTIONS (3)
  - ABDOMINAL PAIN [None]
  - DIARRHOEA HAEMORRHAGIC [None]
  - RECTAL HAEMORRHAGE [None]
